FAERS Safety Report 16379951 (Version 5)
Quarter: 2019Q3

REPORT INFORMATION
  Report Type: Report from Study
  Country: US (occurrence: US)
  Receive Date: 20190531
  Receipt Date: 20190910
  Transmission Date: 20191004
  Serious: Yes (Other)
  Sender: FDA-Public Use
  Company Number: PHEH2019US022732

PATIENT
  Sex: Female

DRUGS (1)
  1. PROMACTA [Suspect]
     Active Substance: ELTROMBOPAG OLAMINE
     Indication: PRODUCT USED FOR UNKNOWN INDICATION
     Route: 065

REACTIONS (7)
  - Brain neoplasm [Unknown]
  - Hypersensitivity [Unknown]
  - Somnolence [Unknown]
  - Dizziness [Unknown]
  - Memory impairment [Unknown]
  - Malaise [Unknown]
  - Therapeutic response unexpected [Unknown]
